FAERS Safety Report 19912736 (Version 1)
Quarter: 2021Q4

REPORT INFORMATION
  Report Type: Spontaneous
  Country: US (occurrence: US)
  Receive Date: 20211004
  Receipt Date: 20211004
  Transmission Date: 20220303
  Serious: Yes (Hospitalization, Disabling)
  Sender: FDA-Public Use
  Company Number: None

PATIENT
  Age: 48 Year
  Sex: Female
  Weight: 96.75 kg

DRUGS (8)
  1. LUPRON DEPOT [Suspect]
     Active Substance: LEUPROLIDE ACETATE
     Indication: Vaginal haemorrhage
     Dates: start: 20160601, end: 20210501
  2. LUPRON DEPOT [Suspect]
     Active Substance: LEUPROLIDE ACETATE
     Indication: Hysterectomy
  3. METOPOROL [Concomitant]
  4. AVORSTATIN [Concomitant]
  5. LOSARTON [Concomitant]
  6. ASPIRIN [Concomitant]
     Active Substance: ASPIRIN
  7. VITAMIN D NOS [Concomitant]
     Active Substance: VITAMIN D NOS
  8. VITAMIN C [Concomitant]
     Active Substance: ASCORBIC ACID

REACTIONS (26)
  - Premature menopause [None]
  - Artificial menopause [None]
  - Head discomfort [None]
  - Arthralgia [None]
  - Myalgia [None]
  - Back pain [None]
  - Arthralgia [None]
  - Neck pain [None]
  - Pain in extremity [None]
  - Memory impairment [None]
  - Feeling abnormal [None]
  - Asthenia [None]
  - Lethargy [None]
  - Asthenia [None]
  - Toxicity to various agents [None]
  - Injury [None]
  - Muscle spasms [None]
  - Multi-organ disorder [None]
  - General physical health deterioration [None]
  - Tooth erosion [None]
  - Alopecia [None]
  - Visual impairment [None]
  - Skin discolouration [None]
  - Skin wrinkling [None]
  - Dementia Alzheimer^s type [None]
  - Executive dysfunction [None]

NARRATIVE: CASE EVENT DATE: 20210902
